FAERS Safety Report 11306141 (Version 4)
Quarter: 2015Q4

REPORT INFORMATION
  Report Type: Report from Study
  Country: GB (occurrence: GB)
  Receive Date: 20150723
  Receipt Date: 20151112
  Transmission Date: 20160304
  Serious: Yes (Death, Hospitalization)
  Sender: FDA-Public Use
  Company Number: GB-CELGENE-GBR-2015053461

PATIENT
  Age: 76 Year
  Sex: Male
  Weight: 103.4 kg

DRUGS (5)
  1. AZACITIDINE. [Suspect]
     Active Substance: AZACITIDINE
     Indication: ACUTE MYELOID LEUKAEMIA
     Dosage: 165 MILLIGRAM
     Route: 058
     Dates: start: 20150414, end: 20150422
  2. LISINOPRIL. [Concomitant]
     Active Substance: LISINOPRIL
     Indication: HYPERTENSION
     Dosage: 25 MILLIGRAM
     Route: 065
     Dates: start: 2011
  3. SENNA [Concomitant]
     Active Substance: SENNA LEAF\SENNOSIDES\SENNOSIDES A AND B
     Indication: CONSTIPATION
     Dosage: 18 GRAM
     Route: 065
     Dates: start: 20150424, end: 20150425
  4. ELTROMBOPAG [Suspect]
     Active Substance: ELTROMBOPAG
     Indication: ACUTE MYELOID LEUKAEMIA
     Dosage: 25 MILLIGRAM
     Route: 048
     Dates: start: 20150407
  5. BENDROFLUMETHIOSONE [Concomitant]
     Indication: HYPERTENSION
     Dosage: 2 TABLET
     Route: 065
     Dates: start: 2011

REACTIONS (1)
  - Tooth infection [Fatal]

NARRATIVE: CASE EVENT DATE: 20150427
